FAERS Safety Report 5132732-4 (Version None)
Quarter: 2006Q4

REPORT INFORMATION
  Report Type: 
  Country: None (occurrence: None)
  Receive Date: 20061017
  Receipt Date: 20061011
  Transmission Date: 20070319
  Serious: Yes (Hospitalization)
  Sender: FDA-Public Use
  Company Number: CAP06000231

PATIENT
  Age: 73 Year
  Sex: Female

DRUGS (3)
  1. ASACOL [Suspect]
     Indication: CROHN'S DISEASE
     Dosage: 400 MG, 3/DAY, ORAL
     Route: 048
     Dates: start: 19960101
  2. CYANOCOBALAMIN [Concomitant]
  3. ACETYLSALICYLIC ACID EC [Concomitant]

REACTIONS (3)
  - DIARRHOEA [None]
  - LUNG NEOPLASM MALIGNANT [None]
  - MEDICATION RESIDUE [None]
